FAERS Safety Report 6664591-2 (Version None)
Quarter: 2010Q2

REPORT INFORMATION
  Report Type: 
  Country: None (occurrence: None)
  Receive Date: 20100401
  Receipt Date: 20100319
  Transmission Date: 20101027
  Serious: Yes (Hospitalization)
  Sender: FDA-Public Use
  Company Number: AU-GENENTECH-222667

PATIENT
  Sex: Male
  Weight: 90.2 kg

DRUGS (10)
  1. RITUXIMAB [Suspect]
     Indication: B-CELL LYMPHOMA
     Dosage: 769 MG, Q28D
     Route: 042
     Dates: start: 20060120
  2. CYCLOPHOSPHAMIDE [Suspect]
     Indication: B-CELL LYMPHOMA
     Dosage: 1500 MG, UNK
     Route: 042
     Dates: start: 20060120
  3. VINCRISTINE [Suspect]
     Indication: B-CELL LYMPHOMA
     Dosage: 2 MG, UNK
     Route: 042
     Dates: start: 20060120
  4. PREDNISOLONE [Suspect]
     Indication: B-CELL LYMPHOMA
     Dosage: 80 MG, UNK
     Route: 048
     Dates: start: 20060121
  5. NEULASTA [Suspect]
     Indication: B-CELL LYMPHOMA
     Dosage: 6 MG, UNK
     Route: 058
     Dates: start: 20060209
  6. ALLOPURINOL [Concomitant]
     Indication: DRUG USE FOR UNKNOWN INDICATION
     Dosage: 300 MG, QD
  7. AVAPRO [Concomitant]
     Indication: DRUG USE FOR UNKNOWN INDICATION
     Dosage: 75 MG, QD
  8. MAXOLON [Concomitant]
     Indication: DRUG USE FOR UNKNOWN INDICATION
     Dosage: 10 MG, PRN
  9. SODIUM BICARB MOUTHWASH [Concomitant]
     Indication: DRUG USE FOR UNKNOWN INDICATION
  10. OMEPRAZOLE [Concomitant]
     Indication: DRUG USE FOR UNKNOWN INDICATION
     Dosage: 30 MG, UNK

REACTIONS (2)
  - NEUTROPENIA [None]
  - SKIN INFECTION [None]
